FAERS Safety Report 6775106-2 (Version None)
Quarter: 2010Q2

REPORT INFORMATION
  Report Type: 
  Country: None (occurrence: None)
  Receive Date: 20100617
  Receipt Date: 20100615
  Transmission Date: 20101027
  Serious: Yes (Other)
  Sender: FDA-Public Use
  Company Number: D0067975A

PATIENT
  Sex: Male

DRUGS (2)
  1. LAMICTAL [Suspect]
     Route: 048
  2. L-POLAMIDON [Suspect]
     Route: 065

REACTIONS (1)
  - CONVULSION [None]
